FAERS Safety Report 8910607 (Version 2)
Quarter: 2012Q4

REPORT INFORMATION
  Report Type: Report from Study
  Country: IT (occurrence: IT)
  Receive Date: 20121114
  Receipt Date: 20121221
  Transmission Date: 20130627
  Serious: Yes (Death, Hospitalization)
  Sender: FDA-Public Use
  Company Number: IT-VIIV HEALTHCARE LIMITED-B0838480A

PATIENT
  Age: 42 Year
  Sex: Male
  Weight: 80 kg

DRUGS (2)
  1. MARAVIROC [Suspect]
     Indication: HIV INFECTION
     Dosage: 150MG Twice per day
     Route: 048
     Dates: start: 20110926, end: 20120621
  2. LAMIVUDINE-HIV [Concomitant]
     Dosage: 300MG Per day
     Dates: start: 20120621, end: 20120818

REACTIONS (1)
  - Burkitt^s lymphoma [Fatal]
